FAERS Safety Report 7388477-3 (Version None)
Quarter: 2011Q2

REPORT INFORMATION
  Report Type: 
  Country: None (occurrence: None)
  Receive Date: 20110401
  Receipt Date: 20110322
  Transmission Date: 20111010
  Serious: Yes (Death)
  Sender: FDA-Public Use
  Company Number: US-JNJFOC-20101100808

PATIENT
  Sex: Male
  Weight: 99.79 kg

DRUGS (11)
  1. NORTRIPTYLINE HCL [Suspect]
     Indication: PRODUCT USED FOR UNKNOWN INDICATION
     Route: 065
  2. ACETAMINOPHEN [Concomitant]
     Indication: PRODUCT USED FOR UNKNOWN INDICATION
     Route: 065
  3. PROZAC [Concomitant]
     Route: 065
  4. OXYCODONE [Suspect]
     Indication: PRODUCT USED FOR UNKNOWN INDICATION
     Route: 065
  5. FENTANYL [Suspect]
     Indication: PAIN
     Route: 062
  6. FENTANYL CITRATE [Suspect]
     Indication: PAIN
     Route: 062
  7. AMITRIPTYLINE [Suspect]
     Indication: PRODUCT USED FOR UNKNOWN INDICATION
     Route: 065
  8. MIDRIN [Concomitant]
     Route: 065
  9. OXYMORPHONE [Concomitant]
     Indication: PRODUCT USED FOR UNKNOWN INDICATION
     Route: 065
  10. ZOLPIDEM [Concomitant]
     Route: 065
  11. SOMA [Concomitant]
     Route: 065

REACTIONS (1)
  - SUBSTANCE ABUSE [None]
